FAERS Safety Report 8816062 (Version 1)
Quarter: 2012Q4

REPORT INFORMATION
  Report Type: 
  Country: FR (occurrence: FR)
  Receive Date: 20120928
  Receipt Date: 20120928
  Transmission Date: 20130627
  Serious: Yes (Other)
  Sender: FDA-Public Use
  Company Number: FR-NOVOPROD-360731

PATIENT
  Age: 7 Year
  Sex: Female

DRUGS (1)
  1. NORDITROPIN SIMPLEXX [Suspect]
     Indication: GROWTH RETARDATION

REACTIONS (4)
  - Hyperlactacidaemia [Unknown]
  - Anaemia [Unknown]
  - Renal tubular disorder [Unknown]
  - Visual acuity reduced [Not Recovered/Not Resolved]
